FAERS Safety Report 9606034 (Version 1)
Quarter: 2013Q4

REPORT INFORMATION
  Report Type: Spontaneous
  Country: US (occurrence: US)
  Receive Date: 20131008
  Receipt Date: 20131008
  Transmission Date: 20140711
  Serious: No
  Sender: FDA-Public Use
  Company Number: US-AMGEN-USASP2013039227

PATIENT
  Sex: Female

DRUGS (6)
  1. PROLIA [Suspect]
     Indication: OSTEOPOROSIS POSTMENOPAUSAL
  2. SYNTHROID [Concomitant]
  3. KEFLEX                             /00145501/ [Concomitant]
  4. TOPROL [Concomitant]
  5. IMITREX                            /01044801/ [Concomitant]
  6. ELMIRON [Concomitant]

REACTIONS (5)
  - Pain [Unknown]
  - Tendonitis [Unknown]
  - Fibromyalgia [Unknown]
  - Injection site reaction [Unknown]
  - Fatigue [Unknown]
